FAERS Safety Report 6231223-7 (Version None)
Quarter: 2009Q2

REPORT INFORMATION
  Report Type: 
  Country: None (occurrence: None)
  Receive Date: 20090616
  Receipt Date: 20090610
  Transmission Date: 20091009
  Serious: Yes (Disabling)
  Sender: FDA-Public Use
  Company Number: US-ASTRAZENECA-2009UW09975

PATIENT
  Age: 59 Year
  Sex: Male
  Weight: 73.9 kg

DRUGS (4)
  1. METOPROLOL SUCCINATE [Suspect]
     Indication: SUPRAVENTRICULAR EXTRASYSTOLES
     Dosage: 25-50 MG
     Route: 048
     Dates: start: 20080701
  2. PRAVASTATIN [Concomitant]
     Indication: BLOOD CHOLESTEROL INCREASED
     Route: 048
     Dates: start: 19970101
  3. LEVOTHROID [Concomitant]
     Indication: HYPOTHYROIDISM
     Route: 048
     Dates: start: 19850101
  4. AMLODIPINE [Concomitant]
     Indication: HYPERTENSION
     Route: 048
     Dates: start: 20000101

REACTIONS (5)
  - ARRHYTHMIA [None]
  - ERECTILE DYSFUNCTION [None]
  - FATIGUE [None]
  - LIBIDO DECREASED [None]
  - SOMNOLENCE [None]
